FAERS Safety Report 25809820 (Version 1)
Quarter: 2025Q3

REPORT INFORMATION
  Report Type: Spontaneous
  Country: EU (occurrence: EU)
  Receive Date: 20250916
  Receipt Date: 20250916
  Transmission Date: 20251020
  Serious: Yes (Hospitalization)
  Sender: BOEHRINGER INGELHEIM
  Company Number: EU-BoehringerIngelheim-2025-BI-094769

PATIENT
  Age: 73 Year
  Sex: Female

DRUGS (2)
  1. DABIGATRAN [Suspect]
     Active Substance: DABIGATRAN
     Indication: Atrial fibrillation
  2. PROPAFENONE [Concomitant]
     Active Substance: PROPAFENONE
     Indication: Atrial fibrillation

REACTIONS (1)
  - Atrial fibrillation [Recovered/Resolved]
